FAERS Safety Report 8382242-6 (Version None)
Quarter: 2012Q1

REPORT INFORMATION
  Report Type: 
  Country: None (occurrence: None)
  Receive Date: 20120323
  Receipt Date: 20110803
  Transmission Date: 20120608
  Serious: Yes (Hospitalization, Other)
  Sender: FDA-Public Use
  Company Number: 163-21880-11051680

PATIENT
  Age: 83 Year
  Sex: Female

DRUGS (4)
  1. REVLIMID [Suspect]
     Indication: MULTIPLE MYELOMA
     Dosage: 25 MG, 1 IN 1 D, PO, 20 MG, 2 IN 1 D, PO, 15 MG, FOR 21 DAYS, PO
     Route: 048
     Dates: start: 20110113, end: 20110101
  2. REVLIMID [Suspect]
     Indication: MULTIPLE MYELOMA
     Dosage: 25 MG, 1 IN 1 D, PO, 20 MG, 2 IN 1 D, PO, 15 MG, FOR 21 DAYS, PO
     Route: 048
     Dates: start: 20110501
  3. REVLIMID [Suspect]
     Indication: MULTIPLE MYELOMA
     Dosage: 25 MG, 1 IN 1 D, PO, 20 MG, 2 IN 1 D, PO, 15 MG, FOR 21 DAYS, PO
     Route: 048
     Dates: start: 20110601
  4. DEXAMETHASONE [Concomitant]

REACTIONS (2)
  - ATRIAL FIBRILLATION [None]
  - PLEURAL EFFUSION [None]
